FAERS Safety Report 17999796 (Version 7)
Quarter: 2020Q4

REPORT INFORMATION
  Report Type: Report from Study
  Country: US (occurrence: US)
  Receive Date: 20200709
  Receipt Date: 20201022
  Transmission Date: 20210113
  Serious: Yes (Other)
  Sender: FDA-Public Use
  Company Number: US-ALNYLAM PHARMACEUTICALS, INC.-ALN-2020-001026

PATIENT

DRUGS (11)
  1. ALN-TTR02 [Suspect]
     Active Substance: PATISIRAN SODIUM
     Indication: CARDIAC AMYLOIDOSIS
     Dosage: 0.3 MILLIGRAM/KILOGRAM, Q3W
     Route: 042
     Dates: start: 20200102
  2. FUROSEMIDE. [Concomitant]
     Active Substance: FUROSEMIDE
     Indication: CARDIAC DISORDER
     Dosage: 40 MILLIGRAM, QD
     Route: 048
     Dates: start: 20180208
  3. ASPIRIN. [Concomitant]
     Active Substance: ASPIRIN
     Indication: CARDIAC DISORDER
     Dosage: 81 MILLIGRAM, QD
     Route: 048
     Dates: start: 20180102
  4. NITROGLYCERIN. [Concomitant]
     Active Substance: NITROGLYCERIN
     Indication: CARDIAC DISORDER
     Dosage: 0.4 MILLIGRAM, PRN
     Route: 060
     Dates: start: 20180102
  5. SPIRONOLACTONE. [Concomitant]
     Active Substance: SPIRONOLACTONE
     Indication: CARDIAC DISORDER
     Dosage: 12.5 MILLIGRAM, QD
     Route: 048
     Dates: start: 20191031
  6. LOSARTAN. [Concomitant]
     Active Substance: LOSARTAN
     Indication: CARDIAC DISORDER
     Dosage: 100 MILLIGRAM, QD
     Route: 048
     Dates: start: 20180702
  7. ATORVASTATIN [Concomitant]
     Active Substance: ATORVASTATIN
     Indication: CARDIAC DISORDER
     Dosage: 80 MILLIGRAM, QD
     Route: 048
     Dates: start: 20180116
  8. METOPROLOL SUCCINATE. [Concomitant]
     Active Substance: METOPROLOL SUCCINATE
     Indication: CARDIAC DISORDER
     Dosage: 25 MILLIGRAM, BID
     Route: 048
     Dates: start: 2019
  9. VITAMIN D [Concomitant]
     Active Substance: VITAMIN D NOS
     Indication: PROPHYLAXIS
     Dosage: 2000 UNIT, EVERY OTHER DAY
     Route: 048
     Dates: start: 2019
  10. TAFAMIDIS [Concomitant]
     Active Substance: TAFAMIDIS MEGLUMINE
     Indication: CARDIAC DISORDER
     Dosage: 80 MILLIGRAM, QD
     Route: 048
     Dates: start: 20181101
  11. VITAMIN D [Concomitant]
     Active Substance: VITAMIN D NOS
     Indication: SUPPLEMENTATION THERAPY

REACTIONS (1)
  - Hepatic enzyme increased [Recovered/Resolved]

NARRATIVE: CASE EVENT DATE: 20200619
